FAERS Safety Report 5133039-1 (Version None)
Quarter: 2006Q4

REPORT INFORMATION
  Report Type: 
  Country: None (occurrence: None)
  Receive Date: 20061023
  Receipt Date: 20061012
  Transmission Date: 20070319
  Serious: Yes (Death)
  Sender: FDA-Public Use
  Company Number: BE-PURDUE-GBR_2006_0002529

PATIENT
  Age: 85 Year
  Sex: Male

DRUGS (2)
  1. PALLADONE [Suspect]
     Indication: PAIN
     Dosage: 16 MG, BID
     Route: 065
  2. DIPIPERON [Concomitant]
     Indication: DRUG USE FOR UNKNOWN INDICATION
     Dosage: 10 MG, TID
     Route: 065

REACTIONS (3)
  - ACUTE PULMONARY OEDEMA [None]
  - CARDIAC FAILURE [None]
  - RESPIRATORY DEPRESSION [None]
